FAERS Safety Report 4501754-6 (Version None)
Quarter: 2004Q3

REPORT INFORMATION
  Report Type: 
  Country: None (occurrence: None)
  Receive Date: 20040928
  Receipt Date: 20040831
  Transmission Date: 20050211
  Serious: No
  Sender: FDA-Public Use
  Company Number: 04P-163-0271982-00

PATIENT
  Age: 77 Year
  Sex: Female
  Weight: 68.9467 kg

DRUGS (5)
  1. HUMIRA [Suspect]
     Indication: RHEUMATOID ARTHRITIS
     Dosage: 40 MG, 1 IN 2 WK, SUBCUTANEOUS
     Route: 058
     Dates: start: 20040608, end: 20040830
  2. HYDROXYCHLOROQUINE PHOSPHATE [Concomitant]
  3. VERAPAMIL [Concomitant]
  4. SULINDAC [Concomitant]
  5. OLOPATADINE HYDROCHLORIDE [Concomitant]

REACTIONS (1)
  - RASH [None]
